FAERS Safety Report 24731488 (Version 1)
Quarter: 2024Q4

REPORT INFORMATION
  Report Type: Spontaneous
  Country: CN (occurrence: CN)
  Receive Date: 20241213
  Receipt Date: 20241213
  Transmission Date: 20250114
  Serious: Yes (Hospitalization, Other)
  Sender: CHEPLAPHARM
  Company Number: CN-CHEPLA-2024015649

PATIENT
  Age: 47 Year
  Sex: Female
  Weight: 55 kg

DRUGS (4)
  1. CAPECITABINE [Suspect]
     Active Substance: CAPECITABINE
     Indication: Gastric cancer
     Dosage: APPROVAL NO. GYZZ H20073024; D1-D14?DAILY DOSE: 3 GRAM
     Route: 048
     Dates: start: 20240816, end: 20240829
  2. PACLITAXEL [Suspect]
     Active Substance: PACLITAXEL
     Indication: Gastric cancer
     Dosage: APPROVAL NO. GYZZ H20203702; IVGTT; D1?DAILY DOSE: 60 MILLIGRAM
     Route: 033
     Dates: start: 20240816, end: 20240816
  3. SINTILIMAB [Suspect]
     Active Substance: SINTILIMAB
     Indication: Gastric cancer
     Dosage: APPROVAL NO. GYZZ S20180016; IVGTT; D1?DAILY DOSE: 0.2 GRAM
     Route: 042
     Dates: start: 20240816, end: 20240816
  4. OXALIPLATIN [Suspect]
     Active Substance: OXALIPLATIN
     Indication: Gastric cancer
     Dosage: APPROVAL NO. GYZZ H20213060; IVGTT; D1?DAILY DOSE: 0.2 GRAM
     Route: 042
     Dates: start: 20240816, end: 20240816

REACTIONS (3)
  - Myelosuppression [Recovering/Resolving]
  - Immune-mediated enterocolitis [Recovering/Resolving]
  - Off label use [Recovered/Resolved]

NARRATIVE: CASE EVENT DATE: 20240816
